FAERS Safety Report 5812882-7 (Version None)
Quarter: 2008Q3

REPORT INFORMATION
  Report Type: 
  Country: None (occurrence: None)
  Receive Date: 20080717
  Receipt Date: 20070611
  Transmission Date: 20090109
  Serious: No
  Sender: FDA-Public Use
  Company Number: A0654825A

PATIENT
  Age: 66 Year
  Sex: Male

DRUGS (1)
  1. NICORETTE [Suspect]

REACTIONS (1)
  - NAUSEA [None]
